FAERS Safety Report 5315352-8 (Version None)
Quarter: 2007Q2

REPORT INFORMATION
  Report Type: 
  Country: None (occurrence: None)
  Receive Date: 20070502
  Receipt Date: 20070424
  Transmission Date: 20071010
  Serious: Yes (Hospitalization)
  Sender: FDA-Public Use
  Company Number: US-AMGEN-STX219005

PATIENT
  Sex: Male

DRUGS (3)
  1. ENBREL [Suspect]
     Indication: PSORIATIC ARTHROPATHY
     Route: 058
     Dates: start: 20070101, end: 20070315
  2. SULFASALAZINE [Suspect]
     Route: 065
  3. NAPROXEN [Concomitant]
     Route: 065

REACTIONS (2)
  - CELLULITIS [None]
  - CYST [None]
